FAERS Safety Report 12070831 (Version 1)
Quarter: 2016Q1

REPORT INFORMATION
  Report Type: Report from Study
  Country: US (occurrence: US)
  Receive Date: 20160211
  Receipt Date: 20160211
  Transmission Date: 20160526
  Serious: No
  Sender: FDA-Public Use
  Company Number: US-AMGEN-USASL2016013814

PATIENT
  Age: 54 Year
  Sex: Female

DRUGS (1)
  1. ENBREL [Suspect]
     Active Substance: ETANERCEPT
     Indication: RHEUMATOID ARTHRITIS
     Dosage: UNK
     Route: 065

REACTIONS (9)
  - Injection site reaction [Unknown]
  - Immune system disorder [Unknown]
  - Peripheral swelling [Recovering/Resolving]
  - Sinusitis [Unknown]
  - Malaise [Unknown]
  - Inflammation [Recovering/Resolving]
  - Hypersensitivity [Unknown]
  - Osteoarthritis [Unknown]
  - Upper respiratory tract infection [Recovered/Resolved]

NARRATIVE: CASE EVENT DATE: 2016
